FAERS Safety Report 7261192-2 (Version None)
Quarter: 2011Q1

REPORT INFORMATION
  Report Type: 
  Country: None (occurrence: None)
  Receive Date: 20110130
  Receipt Date: 20100928
  Transmission Date: 20110831
  Serious: No
  Sender: FDA-Public Use
  Company Number: US-ABBOTT-10P-163-0674321-00

PATIENT
  Age: 42 Year
  Sex: Female

DRUGS (15)
  1. FLONASE [Concomitant]
     Indication: HYPERSENSITIVITY
  2. BIRTH CONTROL PILL [Concomitant]
     Indication: PRODUCT USED FOR UNKNOWN INDICATION
     Dosage: DAILY
  3. MERCAPTOPURINE [Concomitant]
     Indication: CROHN'S DISEASE
     Dosage: 50MG X 1/2 TABLET DAILY
  4. VITAMIN D [Concomitant]
     Indication: PRODUCT USED FOR UNKNOWN INDICATION
  5. MULTI-VITAMIN [Concomitant]
     Indication: PRODUCT USED FOR UNKNOWN INDICATION
     Dosage: DAILY
  6. HUMIRA [Suspect]
     Indication: CROHN'S DISEASE
     Dates: start: 20100804
  7. SYMBICORT [Concomitant]
     Indication: PRODUCT USED FOR UNKNOWN INDICATION
     Dosage: 80/4.5MCG INHALER 2 PUFFS TWICE DAILY
  8. LEVOTHYROXINE SODIUM [Concomitant]
     Indication: HYPOTHYROIDISM
  9. SINGULAIR [Concomitant]
     Indication: ASTHMA
  10. ALLOPURINOL [Concomitant]
     Indication: CROHN'S DISEASE
  11. CALCIUM [Concomitant]
     Indication: PRODUCT USED FOR UNKNOWN INDICATION
  12. FISH OIL [Concomitant]
     Indication: PRODUCT USED FOR UNKNOWN INDICATION
  13. REGLAN [Concomitant]
     Indication: CROHN'S DISEASE
  14. PRILOSEC [Concomitant]
     Indication: GASTROOESOPHAGEAL REFLUX DISEASE
     Dosage: DAILY
  15. CLARITIN [Concomitant]
     Indication: HYPERSENSITIVITY
     Dosage: DAILY

REACTIONS (3)
  - WHEEZING [None]
  - DYSPNOEA [None]
  - PYREXIA [None]
